FAERS Safety Report 4287816-X (Version None)
Quarter: 2004Q1

REPORT INFORMATION
  Report Type: 
  Country: None (occurrence: None)
  Receive Date: 20040205
  Receipt Date: 20040120
  Transmission Date: 20041129
  Serious: Yes (Hospitalization)
  Sender: FDA-Public Use
  Company Number: USA040156787

PATIENT
  Age: 60 Year
  Sex: Male

DRUGS (6)
  1. CIALIS [Suspect]
     Indication: ERECTILE DYSFUNCTION
     Dosage: 20 MG
     Dates: start: 20040111, end: 20040111
  2. MODURETIC 5-50 [Concomitant]
  3. COZAAR [Concomitant]
  4. KCL (POTASSIUM CHLORIDE) [Concomitant]
  5. LIPITOR [Concomitant]
  6. VIAGRA [Concomitant]

REACTIONS (11)
  - ACUTE PULMONARY OEDEMA [None]
  - BUNDLE BRANCH BLOCK LEFT [None]
  - CHEST PAIN [None]
  - DYSPNOEA [None]
  - EJECTION FRACTION DECREASED [None]
  - FEELING ABNORMAL [None]
  - HYPERTENSION [None]
  - HYPOXIA [None]
  - RESPIRATORY DISTRESS [None]
  - VENTRICULAR DYSFUNCTION [None]
  - VENTRICULAR TACHYCARDIA [None]
